FAERS Safety Report 20455128 (Version 1)
Quarter: 2022Q1

REPORT INFORMATION
  Report Type: Spontaneous
  Country: JP (occurrence: JP)
  Receive Date: 20220210
  Receipt Date: 20220210
  Transmission Date: 20220423
  Serious: Yes (Other)
  Sender: FDA-Public Use
  Company Number: JP-JNJFOC-20220224567

PATIENT
  Age: 83 Year
  Sex: Female

DRUGS (1)
  1. ITRACONAZOLE [Suspect]
     Active Substance: ITRACONAZOLE
     Indication: Chromoblastomycosis
     Route: 048

REACTIONS (3)
  - Cardiotoxicity [Unknown]
  - Product use in unapproved indication [Unknown]
  - Off label use [Unknown]
